FAERS Safety Report 24730715 (Version 2)
Quarter: 2025Q1

REPORT INFORMATION
  Report Type: Report from Study
  Country: CN (occurrence: CN)
  Receive Date: 20241213
  Receipt Date: 20250127
  Transmission Date: 20250409
  Serious: Yes (Other)
  Sender: GILEAD
  Company Number: CN-GILEAD-2024-0696631

PATIENT
  Age: 43 Year
  Sex: Female

DRUGS (2)
  1. SACITUZUMAB GOVITECAN-HZIY [Suspect]
     Active Substance: SACITUZUMAB GOVITECAN-HZIY
     Indication: Breast cancer
     Dosage: 540 MG, Q3WK D1, D8, EVERY 3 WEEKS
     Route: 041
     Dates: start: 20241128
  2. SACITUZUMAB GOVITECAN-HZIY [Suspect]
     Active Substance: SACITUZUMAB GOVITECAN-HZIY
     Dosage: 540 MG, Q3WK
     Route: 041
     Dates: start: 20250102

REACTIONS (13)
  - Myelosuppression [Unknown]
  - Lymphocyte count decreased [Unknown]
  - Neutrophil percentage increased [Unknown]
  - Lymphocyte percentage decreased [Unknown]
  - Red blood cell count decreased [Unknown]
  - Haemoglobin decreased [Unknown]
  - Haematocrit decreased [Unknown]
  - Red cell distribution width increased [Unknown]
  - Bilirubin conjugated decreased [Unknown]
  - Blood alkaline phosphatase increased [Unknown]
  - Blood creatinine decreased [Unknown]
  - Blood chloride increased [Unknown]
  - Blood fibrinogen increased [Unknown]
